FAERS Safety Report 20923415 (Version 1)
Quarter: 2022Q2

REPORT INFORMATION
  Report Type: Spontaneous
  Country: US (occurrence: US)
  Receive Date: 20220607
  Receipt Date: 20220607
  Transmission Date: 20220721
  Serious: Yes (Hospitalization)
  Sender: FDA-Public Use
  Company Number: US-Global Blood Therapeutics Inc-US-GBT-22-03348

PATIENT
  Age: 59 Year
  Sex: Female

DRUGS (2)
  1. OXBRYTA [Suspect]
     Active Substance: VOXELOTOR
     Indication: Product used for unknown indication
     Dosage: NOT PROVIDED.
  2. OXBRYTA [Suspect]
     Active Substance: VOXELOTOR

REACTIONS (4)
  - Sickle cell anaemia with crisis [Unknown]
  - Abdominal pain upper [Unknown]
  - Diarrhoea [Unknown]
  - Therapy interrupted [Unknown]

NARRATIVE: CASE EVENT DATE: 20220508
